FAERS Safety Report 4324179-5 (Version None)
Quarter: 2004Q1

REPORT INFORMATION
  Report Type: 
  Country: None (occurrence: None)
  Receive Date: 20040323
  Receipt Date: 20040309
  Transmission Date: 20041129
  Serious: Yes (Death, Other)
  Sender: FDA-Public Use
  Company Number: 2004008871

PATIENT
  Age: 44 Year
  Sex: Male

DRUGS (8)
  1. GEODON [Suspect]
     Indication: BIPOLAR DISORDER
     Dosage: ORAL
     Route: 048
     Dates: start: 20030617, end: 20040114
  2. QUETIAPINE FUMARATE [Concomitant]
  3. DIAZEPAM [Concomitant]
  4. LITHIUM CARBONATE [Concomitant]
  5. PROPRANOLOL [Concomitant]
  6. METFORMIN HYDROCHLORIDE [Concomitant]
  7. FOSINOPRIL SODIUM [Concomitant]
  8. LEVOTHYROXINE SODIUM [Concomitant]

REACTIONS (9)
  - ANEURYSM [None]
  - CIRCULATORY COLLAPSE [None]
  - DYSGEUSIA [None]
  - DYSPNOEA [None]
  - LOSS OF CONSCIOUSNESS [None]
  - MYOCARDIAL INFARCTION [None]
  - PAIN [None]
  - SUDDEN DEATH [None]
  - TOOTH ABSCESS [None]
